FAERS Safety Report 5372798-X (Version None)
Quarter: 2007Q2

REPORT INFORMATION
  Report Type: 
  Country: None (occurrence: None)
  Receive Date: 20070626
  Receipt Date: 20070614
  Transmission Date: 20071010
  Serious: Yes (Hospitalization)
  Sender: FDA-Public Use
  Company Number: PAR_01617_2007

PATIENT
  Age: 43 Year
  Sex: Female

DRUGS (6)
  1. IBUPROFEN [Suspect]
  2. AMOXICILLIN [Suspect]
  3. LAMIVUDINE [Concomitant]
  4. NEVIRAPINE [Concomitant]
  5. ABACAVIR [Concomitant]
  6. INTERFERON [Concomitant]

REACTIONS (5)
  - AGRANULOCYTOSIS [None]
  - ASTHENIA [None]
  - CHILLS [None]
  - NEUTROPENIA [None]
  - PYREXIA [None]
